FAERS Safety Report 24406673 (Version 3)
Quarter: 2025Q1

REPORT INFORMATION
  Report Type: Report from Study
  Country: US (occurrence: US)
  Receive Date: 20241007
  Receipt Date: 20250114
  Transmission Date: 20250409
  Serious: Yes (Other)
  Sender: ABBVIE
  Company Number: US-ABBVIE-5952420

PATIENT
  Age: 77 Year
  Sex: Female
  Weight: 86 kg

DRUGS (31)
  1. RINVOQ [Suspect]
     Active Substance: UPADACITINIB
     Indication: Dermatitis atopic
     Dosage: FORM STRENGTH: 30 MG. FIRST ADMIN DATE? 2024
     Route: 048
  2. RINVOQ [Suspect]
     Active Substance: UPADACITINIB
     Indication: Dermatitis atopic
     Dosage: FORM STRENGTH: 30 MG
     Route: 048
     Dates: start: 20240214, end: 20240827
  3. RINVOQ [Suspect]
     Active Substance: UPADACITINIB
     Indication: Dermatitis atopic
     Dosage: FORM STRENGTH: 30 MG, ?STOPPED IN 2024
     Route: 048
     Dates: start: 202401
  4. BELBUCA [Concomitant]
     Active Substance: BUPRENORPHINE HYDROCHLORIDE
     Indication: Intervertebral disc degeneration
  5. Ceflin [Concomitant]
     Indication: Urinary tract infection
  6. CYMBALTA [Concomitant]
     Active Substance: DULOXETINE HYDROCHLORIDE
     Indication: Osteoarthritis
     Dosage: EACH MORNING
     Route: 065
  7. VOLTAREN [Concomitant]
     Active Substance: DICLOFENAC SODIUM
     Indication: Pain
     Dosage: FORM STRENGTH: 1%, TO BE APPLIED UP TO FOUR TIMES A DAY TO AFFECTED AREAS
     Route: 061
  8. LIDOCAINE [Concomitant]
     Active Substance: LIDOCAINE
     Indication: Pain
     Dosage: FORM STRENGTH: 5%, TO BE APPLIED TO PAIN AREA UP TO FOUR TIMES DAILY
     Route: 061
  9. MAGNESIUM [Concomitant]
     Active Substance: MAGNESIUM
     Indication: Analgesic therapy
     Dosage: EACH MORNING
     Route: 065
  10. MELATONIN [Concomitant]
     Active Substance: MELATONIN
     Indication: Feeling of relaxation
     Route: 065
  11. NALTREXONE [Concomitant]
     Active Substance: NALTREXONE
     Indication: Pain
     Route: 065
  12. ACETAMINOPHEN [Concomitant]
     Active Substance: ACETAMINOPHEN
     Indication: Breakthrough pain
     Route: 065
  13. ALBUTEROL [Concomitant]
     Active Substance: ALBUTEROL
     Indication: Asthma
     Route: 055
  14. ATORVASTATIN [Concomitant]
     Active Substance: ATORVASTATIN
     Indication: Blood cholesterol increased
     Dosage: EACH NIGHT
     Route: 065
  15. BACLOFEN [Concomitant]
     Active Substance: BACLOFEN
     Indication: Muscle relaxant therapy
     Dosage: 1 IN THE EVENING
     Route: 065
  16. CALCIUM CITRATE [Concomitant]
     Active Substance: CALCIUM CITRATE
     Indication: Osteoporosis
     Route: 065
  17. CLONIDINE [Concomitant]
     Active Substance: CLONIDINE
     Indication: Withdrawal syndrome
     Dosage: IF NEEDED
     Route: 065
  18. CLOTRIMAZOLE [Concomitant]
     Active Substance: CLOTRIMAZOLE
     Indication: Fungal infection
     Route: 061
  19. CRANBERRY [Concomitant]
     Active Substance: CRANBERRY
     Indication: Product used for unknown indication
     Dosage: 1 EACH MORNING
     Route: 065
  20. RESTASIS [Concomitant]
     Active Substance: CYCLOSPORINE
     Indication: Dry eye
     Route: 047
  21. DEMANNOSE [Concomitant]
     Active Substance: DEMANNOSE
     Indication: Urinary tract disorder
     Dosage: EACH MORNING
     Route: 065
  22. ESTRADIOL [Concomitant]
     Active Substance: ESTRADIOL
     Indication: Micturition disorder
     Route: 061
  23. FLONASE [Concomitant]
     Active Substance: FLUTICASONE PROPIONATE
     Indication: Asthma
     Dosage: FORM STRENGTH: 50 UG, SPRAY IN EACH NOSTRIL
     Route: 045
  24. GABAPENTIN [Concomitant]
     Active Substance: GABAPENTIN
     Indication: Sleep disorder
     Route: 065
  25. GABAPENTIN [Concomitant]
     Active Substance: GABAPENTIN
     Indication: Sleep disorder
     Route: 065
  26. VITAMIN D3 [Concomitant]
     Active Substance: CHOLECALCIFEROL
     Indication: Osteoporosis
     Dosage: 5000 IU ONE DAY, THEN 10,000 THE NEXT, ALTERNATE, IN THE MORNING
     Route: 065
  27. ONDANSETRON [Concomitant]
     Active Substance: ONDANSETRON
     Indication: Nausea
     Dosage: DISSOLVE ONE TABLET ON TONGUE EVERY EIGHT HOURS, IF NEEDED
     Route: 048
  28. OXYBUTYNIN [Concomitant]
     Active Substance: OXYBUTYNIN
     Indication: Urinary tract disorder
     Dosage: 1 EACH MORNING
     Route: 065
  29. PATADAY [Concomitant]
     Active Substance: OLOPATADINE HYDROCHLORIDE
     Indication: Eye pruritus
     Route: 047
  30. PROLIA [Concomitant]
     Active Substance: DENOSUMAB
     Indication: Osteoporosis
     Route: 065
  31. SYSTANE BALANCE [Concomitant]
     Active Substance: PROPYLENE GLYCOL
     Indication: Dry eye
     Route: 047

REACTIONS (3)
  - Device power source issue [Not Recovered/Not Resolved]
  - Infection [Not Recovered/Not Resolved]
  - Device issue [Not Recovered/Not Resolved]

NARRATIVE: CASE EVENT DATE: 20240801
